FAERS Safety Report 25529832 (Version 2)
Quarter: 2025Q3

REPORT INFORMATION
  Report Type: Spontaneous
  Country: US (occurrence: US)
  Receive Date: 20250708
  Receipt Date: 20250806
  Transmission Date: 20251021
  Serious: No
  Sender: PFIZER
  Company Number: US-PFIZER INC-202500114839

PATIENT
  Age: 16 Year
  Sex: Male

DRUGS (2)
  1. NGENLA [Suspect]
     Active Substance: SOMATROGON-GHLA
     Indication: Hypopituitarism
     Dosage: 57 MG, WEEKLY (EVERY 7 DAYS)
     Route: 058
     Dates: start: 20250602
  2. GENOTROPIN [Concomitant]
     Active Substance: SOMATROPIN

REACTIONS (3)
  - Injection site discharge [Unknown]
  - Wrong technique in device usage process [Unknown]
  - Product prescribing issue [Unknown]
